FAERS Safety Report 9338485 (Version 1)
Quarter: 2013Q2

REPORT INFORMATION
  Report Type: Spontaneous
  Country: US (occurrence: US)
  Receive Date: 20130610
  Receipt Date: 20130610
  Transmission Date: 20140414
  Serious: No
  Sender: FDA-Public Use
  Company Number: US-PFIZER INC-2013174385

PATIENT
  Age: 38 Year
  Sex: Male
  Weight: 110 kg

DRUGS (2)
  1. GABAPENTIN [Suspect]
     Indication: CONVULSION
     Dosage: 600 MG, 4X/DAY
     Dates: start: 2002, end: 200301
  2. IBUPROFEN [Concomitant]
     Indication: HEADACHE
     Dosage: UNK, AS NEEDED

REACTIONS (4)
  - Drug ineffective [Unknown]
  - Diarrhoea [Unknown]
  - Muscle spasms [Unknown]
  - Drug intolerance [Unknown]
